FAERS Safety Report 4635074-6 (Version None)
Quarter: 2005Q2

REPORT INFORMATION
  Report Type: 
  Country: None (occurrence: None)
  Receive Date: 20050414
  Receipt Date: 20050406
  Transmission Date: 20051028
  Serious: Yes (Death, Hospitalization)
  Sender: FDA-Public Use
  Company Number: US-ROCHE-401190

PATIENT
  Age: 48 Year
  Sex: Female
  Weight: 108.9 kg

DRUGS (11)
  1. ENFUVIRTIDE [Suspect]
     Route: 058
     Dates: start: 20041220
  2. ZERIT [Suspect]
     Indication: DRUG USE FOR UNKNOWN INDICATION
     Route: 065
     Dates: start: 20041220, end: 20050325
  3. VIREAD [Suspect]
     Indication: DRUG USE FOR UNKNOWN INDICATION
     Route: 065
     Dates: start: 20040522, end: 20050325
  4. BACTRIM DS [Concomitant]
     Dates: start: 20041201, end: 20050402
  5. LASIX [Concomitant]
     Dosage: TOTAL DAILY DOSE REPORTED AS 40.
     Dates: start: 20040802, end: 20050331
  6. ALDACTONE [Concomitant]
     Dates: start: 20040826, end: 20050331
  7. PREVACID [Concomitant]
     Dates: start: 20041011, end: 20050402
  8. FLUCONAZOLE [Concomitant]
     Dates: start: 20040921, end: 20050402
  9. RESTORIL [Concomitant]
     Dates: start: 20020610, end: 20050402
  10. MARINOL [Concomitant]
     Dates: start: 20040824, end: 20050325
  11. POTASSIUM CHLORIDE [Concomitant]
     Dates: start: 20040802, end: 20050325

REACTIONS (3)
  - HEPATIC FAILURE [None]
  - IMMUNE RECONSTITUTION SYNDROME [None]
  - SEPSIS [None]
